FAERS Safety Report 5106600-8 (Version None)
Quarter: 2006Q3

REPORT INFORMATION
  Report Type: 
  Country: None (occurrence: None)
  Receive Date: 20060731
  Receipt Date: 20050801
  Transmission Date: 20061208
  Serious: Yes (Hospitalization)
  Sender: FDA-Public Use
  Company Number: US-JNJFOC-20050603342

PATIENT
  Age: 55 Year
  Sex: Female
  Weight: 63.5036 kg

DRUGS (4)
  1. RISPERDAL [Suspect]
     Indication: SCHIZOAFFECTIVE DISORDER
  2. SYNTHROID [Concomitant]
  3. TRILEPTAL [Concomitant]
  4. SEROQUEL [Concomitant]

REACTIONS (1)
  - SCHIZOAFFECTIVE DISORDER [None]
